FAERS Safety Report 18240991 (Version 1)
Quarter: 2020Q3

REPORT INFORMATION
  Report Type: Spontaneous
  Country: US (occurrence: US)
  Receive Date: 20200906
  Receipt Date: 20200906
  Transmission Date: 20201103
  Serious: Yes (Death, Hospitalization)
  Sender: FDA-Public Use
  Company Number: None

PATIENT
  Sex: Male

DRUGS (1)
  1. ATIVAN [Suspect]
     Active Substance: LORAZEPAM

REACTIONS (12)
  - General physical health deterioration [None]
  - Fatigue [None]
  - Depressed mood [None]
  - Fear [None]
  - Drug dependence [None]
  - Confusional state [None]
  - Withdrawal syndrome [None]
  - Delusion [None]
  - Judgement impaired [None]
  - Completed suicide [None]
  - Mental impairment [None]
  - Dysarthria [None]
